FAERS Safety Report 9799480 (Version 1)
Quarter: 2014Q1

REPORT INFORMATION
  Report Type: Spontaneous
  Country: RU (occurrence: RU)
  Receive Date: 20140106
  Receipt Date: 20140106
  Transmission Date: 20141002
  Serious: Yes (Death)
  Sender: FDA-Public Use
  Company Number: RU-ALKERMES INC.-ALK-2013-002405

PATIENT
  Sex: 0

DRUGS (1)
  1. VIVITROL [Suspect]
     Indication: DRUG DEPENDENCE
     Dosage: 380 MG, UNK
     Route: 030

REACTIONS (3)
  - Completed suicide [Fatal]
  - Psychotic disorder [Fatal]
  - Drug abuse [Fatal]
